FAERS Safety Report 15461204 (Version 1)
Quarter: 2018Q4

REPORT INFORMATION
  Report Type: Spontaneous
  Country: JP (occurrence: JP)
  Receive Date: 20181003
  Receipt Date: 20181003
  Transmission Date: 20190204
  Serious: Yes (Hospitalization, Other)
  Sender: FDA-Public Use
  Company Number: JP-PFIZER INC-2018390710

PATIENT
  Age: 69 Year
  Sex: Female

DRUGS (1)
  1. CELECOX [Suspect]
     Active Substance: CELECOXIB
     Indication: BACK PAIN
     Dosage: 100 MG, 2X/DAY

REACTIONS (5)
  - Malaise [Unknown]
  - Pyrexia [Recovered/Resolved]
  - Generalised erythema [Recovered/Resolved]
  - Face oedema [Unknown]
  - Erythema multiforme [Recovered/Resolved]
